FAERS Safety Report 26125493 (Version 1)
Quarter: 2025Q4

REPORT INFORMATION
  Report Type: Spontaneous
  Country: GB (occurrence: GB)
  Receive Date: 20251205
  Receipt Date: 20251205
  Transmission Date: 20260117
  Serious: Yes (Death, Other)
  Sender: RANBAXY
  Company Number: GB-MHRA-MED-202511181041474130-VRCPS

PATIENT
  Age: 96 Year
  Sex: Female
  Weight: 63 kg

DRUGS (1)
  1. RIVAROXABAN [Suspect]
     Active Substance: RIVAROXABAN
     Indication: Pulmonary embolism
     Dosage: 15 MILLIGRAM, UNK
     Route: 065

REACTIONS (6)
  - Cerebral haemorrhage [Fatal]
  - Hemiparesis [Not Recovered/Not Resolved]
  - Facial paralysis [Not Recovered/Not Resolved]
  - Cerebral mass effect [Not Recovered/Not Resolved]
  - Hydrocephalus [Not Recovered/Not Resolved]
  - Hypertension [Not Recovered/Not Resolved]

NARRATIVE: CASE EVENT DATE: 20251114
